FAERS Safety Report 6140011-1 (Version None)
Quarter: 2009Q1

REPORT INFORMATION
  Report Type: 
  Country: None (occurrence: None)
  Receive Date: 20090330
  Receipt Date: 20090330
  Transmission Date: 20090719
  Serious: No
  Sender: FDA-Public Use
  Company Number: None

PATIENT
  Age: 25 Year
  Sex: Male
  Weight: 142.9 kg

DRUGS (2)
  1. THERAFLU NIGHTIME SEVERE COLD WARMING SYRUP (NCH)(PARACETAMOL, DIPHENH [Suspect]
     Indication: NASOPHARYNGITIS
     Dosage: 6 TSP, QD, ORAL
     Route: 048
     Dates: start: 20090129, end: 20090130
  2. ^PHLEMEX^ (GUAIFENESIN, DEXTROMETHORPHAN) [Suspect]
     Indication: PYREXIA
     Dosage: 1 DF, BID, ORAL
     Route: 048
     Dates: start: 20090129, end: 20090130

REACTIONS (1)
  - BLISTER [None]
